FAERS Safety Report 8812712 (Version 1)
Quarter: 2012Q4

REPORT INFORMATION
  Report Type: 
  Country: US (occurrence: US)
  Receive Date: 20120927
  Receipt Date: 20120927
  Transmission Date: 20130627
  Serious: Yes (Hospitalization, Other)
  Sender: FDA-Public Use
  Company Number: US-009507513-1101USA01049

PATIENT

DRUGS (2)
  1. FOSAMAX [Suspect]
     Indication: OSTEOPOROSIS PROPHYLAXIS
     Dosage: 70 mg, QW
     Route: 048
     Dates: start: 20060619, end: 20090701
  2. BONIVA [Suspect]
     Indication: OSTEOPOROSIS PROPHYLAXIS
     Dosage: 150 mg, UNK
     Route: 048
     Dates: start: 20090713

REACTIONS (53)
  - Femur fracture [Unknown]
  - Low turnover osteopathy [Unknown]
  - Fall [Unknown]
  - Spondylolisthesis [Not Recovered/Not Resolved]
  - Diverticulum [Unknown]
  - Uterine leiomyoma [Unknown]
  - Lumbar radiculopathy [Not Recovered/Not Resolved]
  - Lumbar spinal stenosis [Not Recovered/Not Resolved]
  - Fall [Unknown]
  - Femur fracture [Recovering/Resolving]
  - Diverticulitis [Unknown]
  - Diverticulitis [Unknown]
  - Diverticulitis intestinal haemorrhagic [Unknown]
  - Plasma cell myeloma [Unknown]
  - Metastatic neoplasm [Unknown]
  - Tendon disorder [Unknown]
  - Joint effusion [Unknown]
  - Osteoarthritis [Unknown]
  - Tendonitis [Unknown]
  - Cataract [Unknown]
  - Cataract [Unknown]
  - Arthropathy [Unknown]
  - Vascular injury [Unknown]
  - Rotator cuff syndrome [Not Recovered/Not Resolved]
  - Osteoarthritis [Unknown]
  - Joint effusion [Unknown]
  - Back pain [Unknown]
  - Pain in extremity [Unknown]
  - Sensitivity of teeth [Unknown]
  - Haemorrhagic disorder [Unknown]
  - Tooth disorder [Unknown]
  - Exostosis of jaw [Unknown]
  - Rotator cuff syndrome [Unknown]
  - Renal cyst [Unknown]
  - Rib fracture [Unknown]
  - Synovitis [Unknown]
  - Osteoarthritis [Unknown]
  - Arthralgia [Unknown]
  - Diverticulitis intestinal haemorrhagic [Unknown]
  - Lower gastrointestinal haemorrhage [Unknown]
  - Hypertension [Unknown]
  - Abdominal adhesions [Unknown]
  - Gastrointestinal injury [Unknown]
  - Hypotension [Unknown]
  - Abdominal pain [Unknown]
  - Incisional hernia [Unknown]
  - Abdominal hernia [Unknown]
  - Spinal osteoarthritis [Unknown]
  - Cardiomegaly [Not Recovered/Not Resolved]
  - Rectal haemorrhage [Unknown]
  - Pleural effusion [Unknown]
  - Mediastinal disorder [Unknown]
  - Pelvic fracture [Unknown]
